FAERS Safety Report 23171706 (Version 1)
Quarter: 2023Q4

REPORT INFORMATION
  Report Type: Spontaneous
  Country: CH (occurrence: CH)
  Receive Date: 20231110
  Receipt Date: 20231110
  Transmission Date: 20240110
  Serious: Yes (Disabling, Other)
  Sender: FDA-Public Use
  Company Number: CH-002147023-NVSC2023CH092226

PATIENT
  Age: 73 Year
  Sex: Male

DRUGS (1)
  1. ZOLEDRONIC ACID ANHYDROUS [Suspect]
     Active Substance: ZOLEDRONIC ACID ANHYDROUS
     Indication: Osteoporotic fracture
     Dosage: 5 MG/100 ML (INFUSION)
     Route: 065
     Dates: start: 20221115

REACTIONS (12)
  - Paralysis [Recovered/Resolved]
  - Diarrhoea [Recovering/Resolving]
  - Nausea [Recovering/Resolving]
  - Arrhythmia [Recovering/Resolving]
  - Arthralgia [Recovering/Resolving]
  - Balance disorder [Recovering/Resolving]
  - Gastrointestinal disorder [Recovering/Resolving]
  - Asthenia [Recovering/Resolving]
  - Blood pressure decreased [Unknown]
  - Myalgia [Unknown]
  - Bedridden [Unknown]
  - Hypokinesia [Unknown]

NARRATIVE: CASE EVENT DATE: 20221101
